FAERS Safety Report 8196297-5 (Version None)
Quarter: 2012Q1

REPORT INFORMATION
  Report Type: 
  Country: None (occurrence: None)
  Receive Date: 20120309
  Receipt Date: 20120306
  Transmission Date: 20120608
  Serious: No
  Sender: FDA-Public Use
  Company Number: US-PFIZER INC-2012060828

PATIENT
  Sex: Female

DRUGS (2)
  1. LYRICA [Suspect]
     Indication: BACK PAIN
  2. LYRICA [Suspect]
     Indication: NECK PAIN
     Dosage: UNK

REACTIONS (3)
  - PRURITUS [None]
  - FEELING ABNORMAL [None]
  - DRUG INEFFECTIVE [None]
